FAERS Safety Report 4972642-6 (Version None)
Quarter: 2006Q1

REPORT INFORMATION
  Report Type: 
  Country: None (occurrence: None)
  Receive Date: 20060216
  Receipt Date: 20051213
  Transmission Date: 20060701
  Serious: Yes (Hospitalization)
  Sender: FDA-Public Use
  Company Number: 200512IM000819

PATIENT
  Age: 72 Year
  Sex: Female

DRUGS (1)
  1. BLINDED THERAPY (INTERFERON GAMMA - 1B) [Suspect]
     Indication: IDIOPATHIC PULMONARY FIBROSIS
     Dosage: SUBCUTANEOUS
     Route: 058

REACTIONS (2)
  - DYSPNOEA [None]
  - PYREXIA [None]
